FAERS Safety Report 4788839-4 (Version None)
Quarter: 2005Q4

REPORT INFORMATION
  Report Type: 
  Country: None (occurrence: None)
  Receive Date: 20051004
  Receipt Date: 20050923
  Transmission Date: 20060501
  Serious: Yes (Other)
  Sender: FDA-Public Use
  Company Number: 2005134020

PATIENT
  Age: 38 Year
  Sex: Female

DRUGS (2)
  1. DEPO-PROVERA [Suspect]
     Indication: CONTRACEPTION
     Dosage: SEE IMAGE
     Route: 030
     Dates: start: 20040916, end: 20040916
  2. DEPO-PROVERA [Suspect]
     Indication: CONTRACEPTION
     Dosage: SEE IMAGE
     Route: 030
     Dates: start: 20050729, end: 20050729

REACTIONS (4)
  - HEPATOSPLENOMEGALY [None]
  - MENSTRUATION IRREGULAR [None]
  - SCHISTOSOMIASIS [None]
  - SENSORY DISTURBANCE [None]
